FAERS Safety Report 7769647-9 (Version None)
Quarter: 2011Q3

REPORT INFORMATION
  Report Type: 
  Country: None (occurrence: None)
  Receive Date: 20110922
  Receipt Date: 20110325
  Transmission Date: 20111222
  Serious: No
  Sender: FDA-Public Use
  Company Number: US-ASTRAZENECA-2009UW10681

PATIENT
  Age: 55 Year
  Sex: Female
  Weight: 117.9 kg

DRUGS (5)
  1. SEROQUEL XR [Suspect]
     Indication: MAJOR DEPRESSION
     Route: 048
     Dates: start: 20030101
  2. XANAX [Concomitant]
  3. SEROQUEL XR [Suspect]
     Route: 048
  4. SEROQUEL XR [Suspect]
     Route: 048
  5. AMBIEN [Concomitant]

REACTIONS (16)
  - CRYING [None]
  - IMPAIRED WORK ABILITY [None]
  - WEIGHT FLUCTUATION [None]
  - GAIT DISTURBANCE [None]
  - RHINORRHOEA [None]
  - DRUG DOSE OMISSION [None]
  - MUSCULOSKELETAL STIFFNESS [None]
  - DRUG WITHDRAWAL SYNDROME [None]
  - FATIGUE [None]
  - CHILLS [None]
  - TENSION [None]
  - HEADACHE [None]
  - STRESS [None]
  - HYPERHIDROSIS [None]
  - INSOMNIA [None]
  - COLD SWEAT [None]
